FAERS Safety Report 8839952 (Version 1)
Quarter: 2012Q4

REPORT INFORMATION
  Report Type: 
  Country: GB (occurrence: GB)
  Receive Date: 20121015
  Receipt Date: 20121015
  Transmission Date: 20130627
  Serious: Yes (Death, Other)
  Sender: FDA-Public Use
  Company Number: GB-JNJFOC-20121006226

PATIENT
  Age: 26 Year
  Sex: Male

DRUGS (6)
  1. OXYBUTYNIN [Suspect]
     Indication: PRODUCT USED FOR UNKNOWN INDICATION
     Route: 065
     Dates: start: 20101026
  2. CHLORAL HYDRATE [Suspect]
     Indication: SLEEP DISORDER
     Route: 048
     Dates: start: 20101026
  3. CHLORAL HYDRATE [Suspect]
     Indication: SLEEP DISORDER
     Route: 048
     Dates: start: 20101030, end: 20101101
  4. CHLORAL HYDRATE [Suspect]
     Indication: PRODUCT USED FOR UNKNOWN INDICATION
     Route: 048
     Dates: start: 20101030, end: 20101101
  5. CHLORAL HYDRATE [Suspect]
     Indication: PRODUCT USED FOR UNKNOWN INDICATION
     Route: 048
     Dates: start: 20101026
  6. DIAZEPAM [Concomitant]
     Indication: PRODUCT USED FOR UNKNOWN INDICATION
     Route: 065

REACTIONS (9)
  - Toxicity to various agents [Fatal]
  - Intentional overdose [Fatal]
  - Abnormal behaviour [Unknown]
  - Cardiac arrest [Unknown]
  - Cold sweat [Unknown]
  - Gait disturbance [Unknown]
  - Speech disorder [Unknown]
  - Somnolence [Unknown]
  - Lethargy [Unknown]
